FAERS Safety Report 24065819 (Version 4)
Quarter: 2024Q4

REPORT INFORMATION
  Report Type: Spontaneous
  Country: DE (occurrence: DE)
  Receive Date: 20240709
  Receipt Date: 20241218
  Transmission Date: 20250115
  Serious: Yes (Other)
  Sender: PFIZER
  Company Number: DE-PFIZER INC-202400204996

PATIENT
  Age: 89 Year
  Sex: Male
  Weight: 80 kg

DRUGS (7)
  1. VYNDAQEL [Suspect]
     Active Substance: TAFAMIDIS MEGLUMINE
     Indication: Amyloidosis
     Dosage: 61 MG, 1X/DAY
     Route: 048
     Dates: start: 20230920, end: 20240202
  2. VALSARTAN [Concomitant]
     Active Substance: VALSARTAN
     Dosage: 1 DF
  3. BISOPROLOL [Concomitant]
     Active Substance: BISOPROLOL
     Dosage: 1.5 DF
  4. TORSEMIDE [Concomitant]
     Active Substance: TORSEMIDE
     Dosage: 1 DF
  5. ALLOPURINOL [Concomitant]
     Active Substance: ALLOPURINOL
     Indication: Hyperuricaemia
     Dosage: 1 DF
  6. ELIQUIS [Concomitant]
     Active Substance: APIXABAN
     Indication: Atrial fibrillation
     Dosage: 1 DF, 2X/DAY
  7. SAB SIMPLEX [DIMETICONE] [Concomitant]
     Indication: Flatulence
     Dosage: UNK

REACTIONS (16)
  - Cardiac failure [Unknown]
  - Diastolic dysfunction [Unknown]
  - Arrhythmia [Unknown]
  - Reaction to excipient [Not Recovered/Not Resolved]
  - Cardiac disorder [Not Recovered/Not Resolved]
  - Flatulence [Recovered/Resolved]
  - Nausea [Not Recovered/Not Resolved]
  - Diarrhoea [Not Recovered/Not Resolved]
  - Dyspnoea [Recovered/Resolved]
  - Palpitations [Recovered/Resolved]
  - Diaphragmatic abnormal relaxation [Recovered/Resolved]
  - Bundle branch block left [Unknown]
  - Blood uric acid increased [Unknown]
  - Mean cell haemoglobin concentration decreased [Unknown]
  - Glycosylated haemoglobin decreased [Unknown]
  - Prostatic specific antigen abnormal [Unknown]

NARRATIVE: CASE EVENT DATE: 20230901
